FAERS Safety Report 8477557-7 (Version None)
Quarter: 2012Q2

REPORT INFORMATION
  Report Type: 
  Country: None (occurrence: None)
  Receive Date: 20120629
  Receipt Date: 20120627
  Transmission Date: 20120825
  Serious: Yes (Other)
  Sender: FDA-Public Use
  Company Number: PHHY2012FR051736

PATIENT
  Age: 80 Year
  Sex: Male
  Weight: 70 kg

DRUGS (1)
  1. ZOLEDRONOC ACID [Suspect]
     Indication: OSTEITIS DEFORMANS
     Dosage: 5 MG, UNK
     Route: 042
     Dates: start: 20120522

REACTIONS (10)
  - MYALGIA [None]
  - RENAL IMPAIRMENT [None]
  - GENERAL PHYSICAL HEALTH DETERIORATION [None]
  - JOINT EFFUSION [None]
  - PAIN [None]
  - INFLAMMATION [None]
  - POLYARTHRITIS [None]
  - RENAL FAILURE [None]
  - POLYMYALGIA RHEUMATICA [None]
  - HYPOKINESIA [None]
